FAERS Safety Report 23687154 (Version 1)
Quarter: 2024Q1

REPORT INFORMATION
  Report Type: Spontaneous
  Country: AR (occurrence: None)
  Receive Date: 20240329
  Receipt Date: 20240329
  Transmission Date: 20240410
  Serious: Yes (Other)
  Sender: FDA-Public Use
  Company Number: AR-Orion Corporation ORION PHARMA-ENTC2024-0033

PATIENT
  Age: 61 Year
  Sex: Female

DRUGS (1)
  1. STALEVO [Suspect]
     Active Substance: CARBIDOPA\ENTACAPONE\LEVODOPA
     Indication: Parkinson^s disease
     Dosage: 4 OR 5 PILLS PER DAY
     Dates: start: 2020

REACTIONS (4)
  - Parkinson^s disease [Unknown]
  - Product use issue [Unknown]
  - Product availability issue [Unknown]
  - Memory impairment [Unknown]
